FAERS Safety Report 5897363-7 (Version None)
Quarter: 2008Q3

REPORT INFORMATION
  Report Type: 
  Country: None (occurrence: None)
  Receive Date: 20080925
  Receipt Date: 20080915
  Transmission Date: 20090109
  Serious: Yes (Hospitalization, Other)
  Sender: FDA-Public Use
  Company Number: US-BAYER-200833616NA

PATIENT
  Age: 56 Year
  Sex: Female

DRUGS (9)
  1. BETASERON [Suspect]
     Indication: RELAPSING-REMITTING MULTIPLE SCLEROSIS
     Dosage: AS USED: 8 MIU
     Route: 058
     Dates: start: 19960101, end: 20080801
  2. AVONEX [Concomitant]
     Indication: MULTIPLE SCLEROSIS
     Dosage: AS USED: 30 ?G
     Route: 030
  3. FLOMAX [Concomitant]
     Indication: CHRONIC OBSTRUCTIVE PULMONARY DISEASE
     Route: 055
  4. TENAXADIN [Concomitant]
     Indication: MULTIPLE SCLEROSIS
     Dosage: TOTAL DAILY DOSE: 0.4 MG
     Route: 048
  5. GABAPENTIN [Concomitant]
     Indication: MULTIPLE SCLEROSIS
     Dosage: TOTAL DAILY DOSE: 600 MG
     Route: 048
  6. VALTREX [Concomitant]
     Indication: ORAL HERPES
     Route: 048
  7. FIORICET [Concomitant]
     Indication: MIGRAINE
     Route: 048
  8. AMBIEN [Concomitant]
  9. ASMANEX TWISTHALER [Concomitant]
     Indication: CHRONIC OBSTRUCTIVE PULMONARY DISEASE
     Route: 055

REACTIONS (1)
  - CELLULITIS [None]
